FAERS Safety Report 8846737 (Version 2)
Quarter: 2012Q4

REPORT INFORMATION
  Report Type: 
  Country: US (occurrence: None)
  Receive Date: 20121016
  Receipt Date: 20121016
  Transmission Date: 20130627
  Serious: Yes (Other)
  Sender: FDA-Public Use
  Company Number: None

PATIENT
  Age: 64 Year
  Sex: Male

DRUGS (1)
  1. CYCLOPENTOLATE\PHENYLEPHRINE\TROPICAMIDE [Suspect]
     Indication: PUPIL DILATION PROCEDURE
     Dates: start: 20120117

REACTIONS (2)
  - Product contamination [None]
  - Punctate keratitis [None]
